FAERS Safety Report 11170462 (Version 1)
Quarter: 2015Q2

REPORT INFORMATION
  Report Type: Spontaneous
  Country: TW (occurrence: None)
  Receive Date: 20150604
  Receipt Date: 20150604
  Transmission Date: 20150821
  Serious: Yes (Other)
  Sender: FDA-Public Use
  Company Number: TW-DEXPHARM-20150339

PATIENT
  Age: 86 Year
  Sex: Male

DRUGS (1)
  1. DICLOFENAC  ACTIVE SUBSTANCES: DICLOFENAC [Suspect]
     Active Substance: DICLOFENAC
     Indication: BACK PAIN
     Dosage: DOSAGE TEXT: 2 DOSES OF 25 MG?DOSE: 25 MG MILLIGRAM(S)?SEPARATE DOSAGES: 2

REACTIONS (2)
  - Drug eruption [None]
  - Dermatitis bullous [None]
